FAERS Safety Report 5304924-2 (Version None)
Quarter: 2007Q2

REPORT INFORMATION
  Report Type: 
  Country: None (occurrence: None)
  Receive Date: 20070423
  Receipt Date: 20070411
  Transmission Date: 20071010
  Serious: Yes (Hospitalization)
  Sender: FDA-Public Use
  Company Number: SG-PFIZER INC-2007029614

PATIENT
  Age: 69 Year
  Sex: Male

DRUGS (2)
  1. HYDROCORTISONE ACETATE [Suspect]
     Dates: start: 20060411, end: 20060412
  2. PREDNISOLONE [Suspect]
     Dates: start: 20060407, end: 20060411

REACTIONS (1)
  - DELIRIUM [None]
